FAERS Safety Report 6593506-0 (Version None)
Quarter: 2010Q1

REPORT INFORMATION
  Report Type: 
  Country: None (occurrence: None)
  Receive Date: 20100222
  Receipt Date: 20090610
  Transmission Date: 20100710
  Serious: No
  Sender: FDA-Public Use
  Company Number: US-BRISTOL-MYERS SQUIBB COMPANY-14657191

PATIENT
  Age: 12 Year
  Sex: Female
  Weight: 44 kg

DRUGS (6)
  1. ORENCIA [Suspect]
     Indication: JUVENILE ARTHRITIS
     Dosage: THERAPY STARTED ON JAN09/FEB09.
     Route: 042
     Dates: start: 20090101
  2. METHOTREXATE [Concomitant]
  3. FOLIC ACID [Concomitant]
  4. DESOGEN [Concomitant]
  5. MULTI-VITAMIN [Concomitant]
  6. REMICADE [Concomitant]
     Dates: end: 20090101

REACTIONS (5)
  - BRONCHITIS [None]
  - HEADACHE [None]
  - IMPETIGO [None]
  - OROPHARYNGEAL PAIN [None]
  - UPPER RESPIRATORY TRACT INFECTION [None]
